FAERS Safety Report 8115332-3 (Version None)
Quarter: 2012Q1

REPORT INFORMATION
  Report Type: 
  Country: None (occurrence: None)
  Receive Date: 20120206
  Receipt Date: 20120206
  Transmission Date: 20120608
  Serious: No
  Sender: FDA-Public Use
  Company Number: None

PATIENT
  Age: 78 Year
  Sex: Male
  Weight: 83.914 kg

DRUGS (1)
  1. ADALIMUMAB [Suspect]
     Indication: PSORIASIS
     Dosage: 40 MG UNDER THE SKIN
     Route: 030
     Dates: start: 20111228, end: 20120124

REACTIONS (1)
  - SKIN EXFOLIATION [None]
